FAERS Safety Report 17805481 (Version 1)
Quarter: 2020Q2

REPORT INFORMATION
  Report Type: Spontaneous
  Country: FR (occurrence: FR)
  Receive Date: 20200520
  Receipt Date: 20200520
  Transmission Date: 20200714
  Serious: Yes (Hospitalization)
  Sender: FDA-Public Use
  Company Number: FR-SA-2020SA127299

PATIENT
  Age: 81 Year
  Sex: Female
  Weight: 50.8 kg

DRUGS (1)
  1. LOVENOX [Suspect]
     Active Substance: ENOXAPARIN SODIUM
     Indication: ATRIAL FIBRILLATION
     Dosage: 1 ML, QD
     Route: 058
     Dates: start: 20200418, end: 20200428

REACTIONS (3)
  - Haemodynamic instability [Recovering/Resolving]
  - Red blood cell count decreased [Recovering/Resolving]
  - Abdominal wall haematoma [Recovering/Resolving]

NARRATIVE: CASE EVENT DATE: 20200428
